FAERS Safety Report 8198690-3 (Version None)
Quarter: 2012Q1

REPORT INFORMATION
  Report Type: 
  Country: None (occurrence: None)
  Receive Date: 20120309
  Receipt Date: 20120228
  Transmission Date: 20120608
  Serious: Yes (Hospitalization, Other)
  Sender: FDA-Public Use
  Company Number: MX-ELI_LILLY_AND_COMPANY-MX201202008573

PATIENT
  Age: 48 Year
  Sex: Male

DRUGS (7)
  1. CIALIS [Suspect]
     Dosage: 5 MG, UNK
  2. METFORMIN HCL [Concomitant]
     Dosage: 500 MG, EVERY 8 HRS
  3. CIALIS [Suspect]
     Indication: ERECTILE DYSFUNCTION
     Dosage: 20 MG, UNK
  4. RAMIPRIL [Concomitant]
     Dosage: 5 MG, QD
  5. INSULIN GLARGINE [Concomitant]
     Dosage: UNK, QD
  6. PRILOSEC [Concomitant]
  7. ALPRAZOLAM [Concomitant]
     Dosage: 0.5 DF, EVERY 8 HRS

REACTIONS (3)
  - GASTROINTESTINAL HAEMORRHAGE [None]
  - GASTROOESOPHAGEAL REFLUX DISEASE [None]
  - GASTROOESOPHAGEAL SPHINCTER INSUFFICIENCY [None]
